FAERS Safety Report 23405011 (Version 4)
Quarter: 2024Q3

REPORT INFORMATION
  Report Type: Spontaneous
  Country: US (occurrence: US)
  Receive Date: 20240116
  Receipt Date: 20240904
  Transmission Date: 20241016
  Serious: Yes (Other)
  Sender: BRISTOL MYERS SQUIBB
  Company Number: US-BRISTOL-MYERS SQUIBB COMPANY-2024-006272

PATIENT
  Age: 73 Year
  Sex: Male

DRUGS (1)
  1. REVLIMID [Suspect]
     Active Substance: LENALIDOMIDE
     Indication: Plasma cell myeloma
     Dosage: QD
     Route: 048

REACTIONS (7)
  - Neuropathy peripheral [Unknown]
  - Product distribution issue [Unknown]
  - Therapy interrupted [Unknown]
  - Gingival bleeding [Unknown]
  - Muscle spasms [Unknown]
  - Peripheral swelling [Unknown]
  - Arthralgia [Unknown]
